FAERS Safety Report 13376915 (Version 3)
Quarter: 2017Q2

REPORT INFORMATION
  Report Type: Spontaneous
  Country: US (occurrence: US)
  Receive Date: 20170328
  Receipt Date: 20170502
  Transmission Date: 20170830
  Serious: Yes (Death, Hospitalization)
  Sender: FDA-Public Use
  Company Number: US-CORCEPT THERAPEUTICS INC.-US-2017CRT000211

PATIENT

DRUGS (2)
  1. KORLYM [Suspect]
     Active Substance: MIFEPRISTONE
     Indication: CUSHING^S SYNDROME
     Dosage: 300 MG QD (AT SOME POINT WAS RECEIVING ONLY 3 TIMES PER WEEK)
     Route: 048
     Dates: start: 20150306, end: 20170303
  2. KORLYM [Suspect]
     Active Substance: MIFEPRISTONE
     Indication: TYPE 2 DIABETES MELLITUS

REACTIONS (4)
  - Cerebral infarction [Fatal]
  - Hypoxia [Fatal]
  - Hypotension [Fatal]
  - Product use issue [Unknown]

NARRATIVE: CASE EVENT DATE: 20150301
